FAERS Safety Report 7721767-0 (Version None)
Quarter: 2011Q3

REPORT INFORMATION
  Report Type: 
  Country: None (occurrence: None)
  Receive Date: 20110831
  Receipt Date: 20110825
  Transmission Date: 20111222
  Serious: Yes (Other)
  Sender: FDA-Public Use
  Company Number: DE-ELI_LILLY_AND_COMPANY-DE201107005541

PATIENT
  Age: 50 Year
  Sex: Male

DRUGS (3)
  1. EFFIENT [Suspect]
     Indication: PERIPHERAL ARTERIAL OCCLUSIVE DISEASE
     Dosage: 10 MG, UNKNOWN
     Route: 048
     Dates: start: 20110101
  2. EFFIENT [Suspect]
     Dosage: 5 MG, UNKNOWN
     Route: 048
     Dates: end: 20110701
  3. ASPIRIN [Concomitant]
     Dosage: UNK, UNKNOWN
     Route: 065

REACTIONS (2)
  - OFF LABEL USE [None]
  - PERIPHERAL ARTERIAL OCCLUSIVE DISEASE [None]
